FAERS Safety Report 14475367 (Version 7)
Quarter: 2018Q2

REPORT INFORMATION
  Report Type: Spontaneous
  Country: US (occurrence: US)
  Receive Date: 20180201
  Receipt Date: 20180521
  Transmission Date: 20180711
  Serious: No
  Sender: FDA-Public Use
  Company Number: US-PFIZER INC-2018043151

PATIENT
  Age: 14 Year
  Sex: Male

DRUGS (1)
  1. GENOTROPIN [Suspect]
     Active Substance: SOMATROPIN
     Dosage: 1.8 MG, ONCE A DAY AT NIGHT
     Route: 058
     Dates: start: 20150205

REACTIONS (4)
  - Drug dose omission [Unknown]
  - Wrong technique in product usage process [Unknown]
  - Drug effect incomplete [Unknown]
  - Injection site pain [Unknown]
